FAERS Safety Report 26070369 (Version 1)
Quarter: 2025Q4

REPORT INFORMATION
  Report Type: Spontaneous
  Country: US (occurrence: US)
  Receive Date: 20251120
  Receipt Date: 20251120
  Transmission Date: 20260117
  Serious: Yes (Other)
  Sender: PFIZER
  Company Number: US-PFIZER INC-202500224995

PATIENT
  Sex: Male

DRUGS (1)
  1. GLIPIZIDE XL [Suspect]
     Active Substance: GLIPIZIDE
     Dosage: 10 MG (24 H EXTENDED RELEASE TABLET)

REACTIONS (1)
  - Colostomy [Unknown]
